FAERS Safety Report 14605242 (Version 1)
Quarter: 2018Q1

REPORT INFORMATION
  Report Type: Spontaneous
  Country: TR (occurrence: TR)
  Receive Date: 20180306
  Receipt Date: 20180306
  Transmission Date: 20180509
  Serious: Yes (Death)
  Sender: FDA-Public Use
  Company Number: TR-BIOTEST PHARMACEUTICALS CORPORATION-TR-2018ADM000014

PATIENT

DRUGS (1)
  1. HUMAN IMMUNOGLOBULIN [Suspect]
     Active Substance: HUMAN IMMUNOGLOBULIN G
     Indication: THROMBOCYTOPENIA
     Dosage: UNK

REACTIONS (1)
  - Subacute sclerosing panencephalitis [Fatal]
